FAERS Safety Report 6727124-8 (Version None)
Quarter: 2010Q2

REPORT INFORMATION
  Report Type: 
  Country: None (occurrence: None)
  Receive Date: 20100517
  Receipt Date: 20100511
  Transmission Date: 20101027
  Serious: Yes (Hospitalization, Other)
  Sender: FDA-Public Use
  Company Number: US-BAYER-201019533NA

PATIENT
  Age: 30 Year
  Sex: Female

DRUGS (1)
  1. BETASERON [Suspect]
     Indication: MULTIPLE SCLEROSIS
     Dosage: TOTAL DAILY DOSE: 8 MIU
     Route: 058
     Dates: start: 20010314

REACTIONS (8)
  - ABDOMINAL PAIN [None]
  - CHILLS [None]
  - FAT NECROSIS [None]
  - INFLAMMATION [None]
  - INJECTION SITE CELLULITIS [None]
  - PELVIC PAIN [None]
  - RASH ERYTHEMATOUS [None]
  - URINARY TRACT INFECTION [None]
